FAERS Safety Report 7654078-2 (Version None)
Quarter: 2011Q3

REPORT INFORMATION
  Report Type: 
  Country: None (occurrence: None)
  Receive Date: 20110803
  Receipt Date: 20110725
  Transmission Date: 20111222
  Serious: Yes (Hospitalization)
  Sender: FDA-Public Use
  Company Number: PHHY2011CN68621

PATIENT

DRUGS (1)
  1. ZOLEDRONOC ACID [Suspect]
     Indication: OSTEOPOROSIS
     Dosage: 5 MG, UNK
     Route: 042
     Dates: start: 20110413

REACTIONS (12)
  - HEADACHE [None]
  - GASTROINTESTINAL SOUNDS ABNORMAL [None]
  - MALAISE [None]
  - VOMITING [None]
  - VITAL FUNCTIONS ABNORMAL [None]
  - PALPITATIONS [None]
  - NAUSEA [None]
  - TENDERNESS [None]
  - BODY TEMPERATURE INCREASED [None]
  - DRY MOUTH [None]
  - RESPIRATORY DISORDER [None]
  - INFLAMMATION [None]
